FAERS Safety Report 8057368-7 (Version None)
Quarter: 2012Q1

REPORT INFORMATION
  Report Type: 
  Country: None (occurrence: None)
  Receive Date: 20120119
  Receipt Date: 20110603
  Transmission Date: 20120608
  Serious: Yes (Other)
  Sender: FDA-Public Use
  Company Number: FR-PFIZER INC-K201100679

PATIENT
  Age: 64 Year
  Sex: Male
  Weight: 101 kg

DRUGS (21)
  1. ALTACE [Suspect]
     Dosage: 2.5 MG, QAM
  2. ROSUVASTATIN [Concomitant]
     Dosage: 10 MG, UNK
  3. CLOPIDOGREL [Concomitant]
  4. PERINDOPRIL ARGININE [Concomitant]
     Indication: MYOCARDIAL ISCHAEMIA
     Dosage: 5 MG, UNK
     Dates: start: 20090601
  5. ASPIRIN [Concomitant]
     Indication: MYOCARDIAL ISCHAEMIA
     Dosage: 75 MG, UNK
     Dates: start: 20081101
  6. HYDROMOL [Concomitant]
     Dosage: UNK
  7. IBUPROFEN [Concomitant]
     Dosage: UNK
  8. PARACETAMOL [Concomitant]
     Dosage: UNK
  9. PETHIDINE [Concomitant]
     Dosage: 50 MG, UNK
  10. PROPRANOLOL [Concomitant]
     Dosage: UNK
  11. LACTOBACILLUS [Concomitant]
     Indication: IRRITABLE BOWEL SYNDROME
     Dosage: UNK
  12. MORPHINE [Concomitant]
     Dosage: UNK
  13. TRAMADOL [Concomitant]
     Dosage: 50 MG, UNK
  14. PSYLLIUM HUSK [Concomitant]
     Indication: IRRITABLE BOWEL SYNDROME
     Dosage: UNK
  15. ALTACE [Suspect]
     Indication: CARDIAC DISORDER
     Dosage: 2.5 MG, 1X/DAY
     Route: 048
  16. BISOPROLOL [Suspect]
     Indication: MYOCARDIAL ISCHAEMIA
     Dosage: 2.5 MG, 1X/DAY
     Route: 048
     Dates: end: 20100801
  17. NEBIVOLOL [Suspect]
     Dosage: 5 MG, UNK
     Route: 048
     Dates: start: 20100209
  18. PEPPERMINT OIL [Concomitant]
     Dosage: UNK
  19. BISOPROLOL [Suspect]
     Indication: ACUTE MYOCARDIAL INFARCTION
  20. CLOBETASOL PROPIONATE [Concomitant]
     Dosage: UNK
  21. ACHILLEA MILLEFOLIUM [Concomitant]

REACTIONS (5)
  - LIGAMENT INJURY [None]
  - JOINT SWELLING [None]
  - OSTEOARTHRITIS [None]
  - FALL [None]
  - PSORIASIS [None]
